FAERS Safety Report 6312600-2 (Version None)
Quarter: 2009Q3

REPORT INFORMATION
  Report Type: 
  Country: None (occurrence: None)
  Receive Date: 20090813
  Receipt Date: 20090806
  Transmission Date: 20100115
  Serious: Yes (Death, Other)
  Sender: FDA-Public Use
  Company Number: 2009US003050

PATIENT
  Age: 63 Year
  Sex: Male

DRUGS (4)
  1. PROGRAF [Suspect]
     Indication: STEM CELL TRANSPLANT
  2. CORTICOSTEROID NOS (CORTICOSTEROID NOS) [Concomitant]
  3. MYCOPHENOLATE MOFETIL [Concomitant]
  4. POSACONAZOLE [Concomitant]

REACTIONS (7)
  - BACTERIAL INFECTION [None]
  - CYSTITIS HAEMORRHAGIC [None]
  - CYTOMEGALOVIRUS INFECTION [None]
  - MYCOBACTERIUM FORTUITUM INFECTION [None]
  - PARAINFLUENZAE VIRUS INFECTION [None]
  - PNEUMONIA FUNGAL [None]
  - STRONGYLOIDIASIS [None]
